FAERS Safety Report 17835874 (Version 3)
Quarter: 2020Q2

REPORT INFORMATION
  Report Type: Spontaneous
  Country: US (occurrence: US)
  Receive Date: 20200528
  Receipt Date: 20200617
  Transmission Date: 20200714
  Serious: Yes (Other)
  Sender: FDA-Public Use
  Company Number: US-GILEAD-2020-0468237

PATIENT
  Age: 23 Year
  Sex: Male
  Weight: 85.5 kg

DRUGS (12)
  1. HYDROXYCHLOROQUINE [Concomitant]
     Active Substance: HYDROXYCHLOROQUINE
  2. DEXTROMETHORPHAN [Concomitant]
     Active Substance: DEXTROMETHORPHAN
     Dosage: 30 MG
     Route: 048
  3. BENZONATATE. [Concomitant]
     Active Substance: BENZONATATE
  4. IBUPROFEN. [Concomitant]
     Active Substance: IBUPROFEN
     Dosage: 400 MG
     Route: 048
     Dates: start: 20200506, end: 20200506
  5. ALBUTEROL HFA [Concomitant]
     Active Substance: ALBUTEROL SULFATE
  6. ACETAMINOPHEN. [Concomitant]
     Active Substance: ACETAMINOPHEN
     Dosage: 1000 MG Q5H
     Route: 048
     Dates: start: 20200505, end: 20200506
  7. ENOXAPARIN [Concomitant]
     Active Substance: ENOXAPARIN
  8. PREDNISONE. [Concomitant]
     Active Substance: PREDNISONE
  9. REMDESIVIR. [Suspect]
     Active Substance: REMDESIVIR
     Indication: COVID-19
     Dosage: 200 MG, ONCE
     Route: 042
     Dates: start: 20200508, end: 20200509
  10. ASPIRIN [ACETYLSALICYLIC ACID] [Concomitant]
     Active Substance: ASPIRIN
  11. VITAMIN C [Concomitant]
     Active Substance: ASCORBIC ACID
  12. ZINC SULFATE. [Concomitant]
     Active Substance: ZINC SULFATE

REACTIONS (1)
  - Liver function test increased [Unknown]

NARRATIVE: CASE EVENT DATE: 20200508
